FAERS Safety Report 21731571 (Version 1)
Quarter: 2022Q4

REPORT INFORMATION
  Report Type: Spontaneous
  Country: US (occurrence: None)
  Receive Date: 20221215
  Receipt Date: 20221215
  Transmission Date: 20230113
  Serious: Yes (Other)
  Sender: FDA-Public Use
  Company Number: US-Hikma Pharmaceuticals USA Inc.-US-H14001-22-03117

PATIENT
  Age: 59 Year
  Sex: Male

DRUGS (10)
  1. DOXYCYCLINE HYCLATE [Suspect]
     Active Substance: DOXYCYCLINE HYCLATE
     Indication: Cellulitis
     Dosage: UNKNOWN
     Route: 048
  2. DOXYCYCLINE HYCLATE [Suspect]
     Active Substance: DOXYCYCLINE HYCLATE
     Indication: Mycobacterium marinum infection
  3. DOXYCYCLINE HYCLATE [Suspect]
     Active Substance: DOXYCYCLINE HYCLATE
     Indication: Cellulitis
     Dosage: UNKNOWN
     Route: 051
  4. DOXYCYCLINE HYCLATE [Suspect]
     Active Substance: DOXYCYCLINE HYCLATE
     Indication: Mycobacterium marinum infection
  5. RIFAMPIN [Concomitant]
     Active Substance: RIFAMPIN
     Indication: Cellulitis
     Dosage: UNKNOWN
     Route: 051
  6. RIFAMPIN [Concomitant]
     Active Substance: RIFAMPIN
     Indication: Mycobacterium marinum infection
  7. CEPHALEXIN [Concomitant]
     Active Substance: CEPHALEXIN
     Indication: Cellulitis
     Dosage: UNKNOWN
     Route: 048
  8. CEPHALEXIN [Concomitant]
     Active Substance: CEPHALEXIN
     Indication: Mycobacterium marinum infection
  9. VANCOMYCIN [Concomitant]
     Active Substance: VANCOMYCIN
     Indication: Cellulitis
     Dosage: UNKNOWN
     Route: 051
  10. VANCOMYCIN [Concomitant]
     Active Substance: VANCOMYCIN
     Indication: Mycobacterium marinum infection

REACTIONS (1)
  - Pathogen resistance [Unknown]
